FAERS Safety Report 4923067-0 (Version None)
Quarter: 2006Q1

REPORT INFORMATION
  Report Type: 
  Country: None (occurrence: None)
  Receive Date: 20060113
  Receipt Date: 20050311
  Transmission Date: 20060701
  Serious: Yes (Other)
  Sender: FDA-Public Use
  Company Number: HQWYE194816JUL04

PATIENT
  Age: 50 Year
  Sex: Female
  Weight: 72.64 kg

DRUGS (5)
  1. PREMPRO [Suspect]
     Indication: HORMONE REPLACEMENT THERAPY
     Dosage: ORAL
     Route: 048
     Dates: start: 19980501
  2. ESTRADERM [Suspect]
     Dates: start: 19950601
  3. PREMARIN [Suspect]
     Dates: start: 19990901
  4. PROVERA [Suspect]
     Dates: start: 19951201, end: 19970201
  5. VIVELLE [Suspect]
     Dates: start: 19970501, end: 19980301

REACTIONS (1)
  - BREAST CANCER [None]
